FAERS Safety Report 5263344-X (Version None)
Quarter: 2007Q1

REPORT INFORMATION
  Report Type: 
  Country: None (occurrence: None)
  Receive Date: 20061219
  Receipt Date: 20061115
  Transmission Date: 20070707
  Serious: No
  Sender: FDA-Public Use
  Company Number: 2006US002660

PATIENT
  Age: 75 Year
  Sex: Male

DRUGS (4)
  1. VESICARE [Suspect]
     Indication: POLLAKIURIA
     Dosage: 5 MG, ORAL, 10 MG, ORAL
     Route: 048
     Dates: start: 20061001
  2. ZOCOR [Concomitant]
  3. ANTIHYPERTENSIVES [Concomitant]
  4. ALLOPURINOL [Concomitant]

REACTIONS (1)
  - DRUG INEFFECTIVE [None]
